FAERS Safety Report 6565237-4 (Version None)
Quarter: 2010Q1

REPORT INFORMATION
  Report Type: 
  Country: None (occurrence: None)
  Receive Date: 20100201
  Receipt Date: 20100127
  Transmission Date: 20100710
  Serious: Yes (Death)
  Sender: FDA-Public Use
  Company Number: US-ROCHE-668934

PATIENT
  Sex: Female
  Weight: 87.1 kg

DRUGS (1)
  1. CAPECITABINE [Suspect]
     Indication: COLORECTAL CANCER
     Dosage: DOSAGE REPORTED: THREE 500 MG TABLETS BID AND ONE 150 MG TABLET BID
     Route: 048
     Dates: start: 20090416, end: 20091108

REACTIONS (1)
  - BONE SARCOMA [None]
